FAERS Safety Report 15468891 (Version 2)
Quarter: 2018Q4

REPORT INFORMATION
  Report Type: Report from Study
  Country: US (occurrence: US)
  Receive Date: 20181005
  Receipt Date: 20181221
  Transmission Date: 20190205
  Serious: Yes (Hospitalization)
  Sender: FDA-Public Use
  Company Number: US-JNJFOC-20181005329

PATIENT
  Age: 72 Year
  Sex: Male

DRUGS (4)
  1. NORVASC [Concomitant]
     Active Substance: AMLODIPINE BESYLATE
  2. IMBRUVICA [Suspect]
     Active Substance: IBRUTINIB
     Indication: CHRONIC LYMPHOCYTIC LEUKAEMIA
     Route: 048
     Dates: start: 20180509
  3. WARFARIN [Concomitant]
     Active Substance: WARFARIN
  4. ASPIRIN. [Concomitant]
     Active Substance: ASPIRIN

REACTIONS (2)
  - Bronchitis [Unknown]
  - Dizziness [Unknown]

NARRATIVE: CASE EVENT DATE: 20180927
